FAERS Safety Report 4296093-5 (Version None)
Quarter: 2004Q1

REPORT INFORMATION
  Report Type: 
  Country: None (occurrence: None)
  Receive Date: 20040213
  Receipt Date: 20040213
  Transmission Date: 20041129
  Serious: Yes (Other)
  Sender: FDA-Public Use
  Company Number: None

PATIENT
  Age: 28 Year
  Sex: Male
  Weight: 92.0802 kg

DRUGS (1)
  1. TRAZODONE HCL [Suspect]
     Dosage: 1 1 ORAL
     Route: 048

REACTIONS (5)
  - EYE PAIN [None]
  - FEAR [None]
  - HEADACHE [None]
  - INSOMNIA [None]
  - MYALGIA [None]
